FAERS Safety Report 9077445 (Version 1)
Quarter: 2013Q1

REPORT INFORMATION
  Report Type: Report from Study
  Country: US (occurrence: US)
  Receive Date: 20130130
  Receipt Date: 20130130
  Transmission Date: 20140127
  Serious: No
  Sender: FDA-Public Use
  Company Number: US-ABBOTT-12P-163-0951030-00

PATIENT
  Age: 36 None
  Sex: Female
  Weight: 79.45 kg

DRUGS (6)
  1. HUMIRA 40 MG/0.8 ML PEN [Suspect]
     Indication: HIDRADENITIS
     Dates: start: 201204
  2. CYMBALTA [Concomitant]
     Indication: DEPRESSION
  3. ADDERALL [Concomitant]
     Indication: AFFECTIVE DISORDER
  4. XANAX [Concomitant]
     Indication: AFFECTIVE DISORDER
  5. XANAX [Concomitant]
     Indication: ANXIETY
  6. VALTREX [Concomitant]
     Indication: HERPES VIRUS INFECTION

REACTIONS (4)
  - Menstruation delayed [Not Recovered/Not Resolved]
  - Off label use [Not Recovered/Not Resolved]
  - Amenorrhoea [Not Recovered/Not Resolved]
  - Menopause [Not Recovered/Not Resolved]
